FAERS Safety Report 7600081-8 (Version None)
Quarter: 2011Q3

REPORT INFORMATION
  Report Type: 
  Country: None (occurrence: None)
  Receive Date: 20110711
  Receipt Date: 20110627
  Transmission Date: 20111222
  Serious: Yes (Other)
  Sender: FDA-Public Use
  Company Number: JP-JNJFOC-20110306434

PATIENT
  Sex: Female
  Weight: 42 kg

DRUGS (15)
  1. RHEUMATREX [Concomitant]
     Route: 048
     Dates: start: 20060601
  2. PREDNISOLONE [Concomitant]
     Dosage: 20 MG, 5 MG, 2.5 MG
     Dates: start: 19950316
  3. MOVER [Concomitant]
     Route: 048
     Dates: start: 19950316
  4. FOLIC ACID [Concomitant]
     Indication: PROPHYLAXIS
     Route: 048
  5. AMARYL [Concomitant]
     Indication: DIABETES MELLITUS
     Route: 048
  6. ADOFEED [Concomitant]
     Indication: RHEUMATOID ARTHRITIS
  7. ASPARA-CA [Concomitant]
     Indication: OSTEOPOROSIS
     Dosage: 600/200 MG PER DOSE
     Route: 048
  8. ENBREL [Concomitant]
  9. LOXONIN [Concomitant]
     Dates: start: 19950316
  10. REMICADE [Suspect]
     Dosage: 2 INFUSIONS
     Route: 042
     Dates: start: 20060807
  11. REMICADE [Suspect]
     Dosage: TOTAL 7 INFUSIONS
     Route: 042
     Dates: start: 20070502
  12. HYDROCORTISONE [Concomitant]
  13. REMICADE [Suspect]
     Indication: RHEUMATOID ARTHRITIS
     Route: 042
     Dates: start: 20061117
  14. RHEUMATREX [Concomitant]
     Indication: RHEUMATOID ARTHRITIS
     Route: 048
     Dates: start: 19950316, end: 20051101
  15. GLAKAY [Concomitant]
     Indication: OSTEOPOROSIS
     Route: 048

REACTIONS (8)
  - ADRENAL INSUFFICIENCY [None]
  - CARDIAC FAILURE CONGESTIVE [None]
  - HYPONATRAEMIA [None]
  - DIVERTICULITIS [None]
  - PNEUMONIA STAPHYLOCOCCAL [None]
  - DIABETES MELLITUS INADEQUATE CONTROL [None]
  - HYPERCAPNIA [None]
  - DISUSE SYNDROME [None]
